FAERS Safety Report 8491128-8 (Version None)
Quarter: 2012Q3

REPORT INFORMATION
  Report Type: 
  Country: None (occurrence: None)
  Receive Date: 20120706
  Receipt Date: 20120628
  Transmission Date: 20120928
  Serious: Yes (Hospitalization, Other)
  Sender: FDA-Public Use
  Company Number: US-BAYER-2012-016762

PATIENT
  Sex: Female

DRUGS (11)
  1. DROSPIRENONE AND ETHINYL ESTRADIOL [Suspect]
  2. YASMIN [Suspect]
     Indication: CONTRACEPTION
  3. SINGULAIR [Concomitant]
     Dosage: 10 MG, UNK
  4. DITROPAN [Concomitant]
     Dosage: 10 MG, UNK
  5. ONDANSETRON HYDROCHLORIDE [Concomitant]
     Dosage: UNK
     Dates: start: 20100714
  6. OMEPRAZOLE [Concomitant]
  7. OXYBUTYNIN [Concomitant]
     Dosage: UNK
     Dates: start: 20080810
  8. LISINOPRIL [Concomitant]
     Dosage: 10 MG, UNK
  9. HYDROCHLOROTHIAZIDE [Concomitant]
     Dosage: 25 MG, UNK
  10. DEPO-PROVERA [Concomitant]
     Dosage: UNK
     Dates: end: 20101119
  11. YAZ [Suspect]

REACTIONS (16)
  - PULMONARY EMBOLISM [None]
  - GALLBLADDER ENLARGEMENT [None]
  - DEEP VEIN THROMBOSIS POSTOPERATIVE [None]
  - DIARRHOEA [None]
  - ABDOMINAL PAIN UPPER [None]
  - DYSPNOEA [None]
  - ANHEDONIA [None]
  - DISTURBANCE IN ATTENTION [None]
  - SLEEP DISORDER [None]
  - VOMITING [None]
  - TEARFULNESS [None]
  - CHEST PAIN [None]
  - FEELING OF DESPAIR [None]
  - CHOLECYSTITIS CHRONIC [None]
  - HYPERTENSION [None]
  - NAUSEA [None]
